FAERS Safety Report 5379364-0 (Version None)
Quarter: 2007Q3

REPORT INFORMATION
  Report Type: 
  Country: None (occurrence: None)
  Receive Date: 20070705
  Receipt Date: 20070628
  Transmission Date: 20080115
  Serious: Yes (Other)
  Sender: FDA-Public Use
  Company Number: FR-PFIZER INC-2007053449

PATIENT
  Sex: Female

DRUGS (4)
  1. TRIFLUCAN [Suspect]
     Indication: ORAL CANDIDIASIS
  2. DIOSMINE [Concomitant]
  3. PRAVASTATIN [Concomitant]
  4. NYSTATINE [Concomitant]

REACTIONS (1)
  - HAEMATOMA [None]
